FAERS Safety Report 10889453 (Version 1)
Quarter: 2015Q1

REPORT INFORMATION
  Report Type: Spontaneous
  Country: US (occurrence: US)
  Receive Date: 20150305
  Receipt Date: 20150305
  Transmission Date: 20150721
  Serious: Yes (Other)
  Sender: FDA-Public Use
  Company Number: ALCN2015US001432

PATIENT
  Age: 63 Year
  Sex: Female

DRUGS (2)
  1. ALPHAGAN P [Concomitant]
     Active Substance: BRIMONIDINE TARTRATE
     Indication: GLAUCOMA
     Dosage: 1 GTT, BID
     Route: 047
     Dates: start: 20150121
  2. ILEVRO [Suspect]
     Active Substance: NEPAFENAC
     Indication: SLIT-LAMP EXAMINATION
     Dosage: 1 GTT, QD
     Route: 047
     Dates: start: 20150213, end: 20150216

REACTIONS (8)
  - Visual acuity reduced [Recovering/Resolving]
  - Drug administration error [Recovering/Resolving]
  - Photophobia [Recovering/Resolving]
  - Conjunctivitis allergic [Recovering/Resolving]
  - Corneal erosion [Recovering/Resolving]
  - Off label use [Recovering/Resolving]
  - Eye pain [Recovering/Resolving]
  - Corneal scar [Recovering/Resolving]

NARRATIVE: CASE EVENT DATE: 20150213
